FAERS Safety Report 4618282-X (Version None)
Quarter: 2005Q2

REPORT INFORMATION
  Report Type: 
  Country: None (occurrence: None)
  Receive Date: 20050310
  Receipt Date: 20040813
  Transmission Date: 20051028
  Serious: No
  Sender: FDA-Public Use
  Company Number: 04H-163-0270900-00

PATIENT

DRUGS (3)
  1. FENTANYL CITRATE [Suspect]
  2. FENTANYL CITRATE [Suspect]
  3. BUPIVACAINE HCL [Suspect]

REACTIONS (1)
  - HYPOTENSION [None]
